FAERS Safety Report 4943760-3 (Version None)
Quarter: 2006Q1

REPORT INFORMATION
  Report Type: 
  Country: None (occurrence: None)
  Receive Date: 20060314
  Receipt Date: 20050930
  Transmission Date: 20060701
  Serious: Yes (Hospitalization)
  Sender: FDA-Public Use
  Company Number: PR-MERCK-0510USA01570

PATIENT
  Age: 45 Year
  Sex: Female
  Weight: 70 kg

DRUGS (10)
  1. SENOKOT-S TABLETS [Concomitant]
     Route: 048
  2. VALTREX [Concomitant]
     Route: 048
  3. ZOVIRAX [Concomitant]
     Route: 048
  4. VIOXX [Suspect]
     Indication: DYSMENORRHOEA
     Route: 048
     Dates: start: 19990101, end: 20040601
  5. VIOXX [Suspect]
     Indication: ENDOMETRIOSIS
     Route: 048
     Dates: start: 19990101, end: 20040601
  6. [THERAPY UNSPECIFIED] [Concomitant]
     Route: 048
  7. BEXTRA [Concomitant]
     Route: 048
  8. DURICEF [Concomitant]
     Route: 048
  9. LUPRON DEPOT-4 [Concomitant]
     Route: 030
  10. MEGACE [Concomitant]
     Route: 048

REACTIONS (13)
  - ANGINA PECTORIS [None]
  - ARRHYTHMIA [None]
  - CARDIOVASCULAR DISORDER [None]
  - CEREBROVASCULAR ACCIDENT [None]
  - CHEST PAIN [None]
  - DEEP VEIN THROMBOSIS [None]
  - HEADACHE [None]
  - HYSTERECTOMY [None]
  - MYOCARDIAL INFARCTION [None]
  - ORGAN FAILURE [None]
  - PULMONARY EMBOLISM [None]
  - THROMBOSIS [None]
  - VAGINAL HAEMORRHAGE [None]
